FAERS Safety Report 19794516 (Version 1)
Quarter: 2021Q3

REPORT INFORMATION
  Report Type: Spontaneous
  Country: CH (occurrence: CH)
  Receive Date: 20210906
  Receipt Date: 20210906
  Transmission Date: 20211014
  Serious: Yes (Other)
  Sender: FDA-Public Use
  Company Number: CH-DSJP-DSE-2021-127945

PATIENT
  Age: 41 Year

DRUGS (4)
  1. PRASUGREL HYDROCHLORIDE [Suspect]
     Active Substance: PRASUGREL HYDROCHLORIDE
     Indication: ACUTE MYOCARDIAL INFARCTION
     Dosage: 60 MG
  2. TIROFIBAN [Suspect]
     Active Substance: TIROFIBAN
     Indication: ACUTE MYOCARDIAL INFARCTION
     Dosage: 25 UG/KG
  3. ACETYLSALICYLIC ACID [Suspect]
     Active Substance: ASPIRIN
     Indication: ACUTE MYOCARDIAL INFARCTION
     Dosage: 500 MG
  4. HEPARIN [Suspect]
     Active Substance: HEPARIN SODIUM
     Indication: ACUTE MYOCARDIAL INFARCTION
     Dosage: 5000 IU

REACTIONS (2)
  - Vision blurred [Unknown]
  - Conjunctival haemorrhage [Unknown]
